FAERS Safety Report 8325084-X (Version None)
Quarter: 2012Q2

REPORT INFORMATION
  Report Type: 
  Country: None (occurrence: None)
  Receive Date: 20120501
  Receipt Date: 20100323
  Transmission Date: 20120825
  Serious: No
  Sender: FDA-Public Use
  Company Number: US-TEVA-2010001694

PATIENT
  Sex: Female
  Weight: 61.29 kg

DRUGS (2)
  1. NUVIGIL [Suspect]
     Indication: NARCOLEPSY
     Dosage: 500 MILLIGRAM;
     Dates: start: 20091001
  2. DILANTIN [Concomitant]
     Indication: CONVULSION
     Dosage: 400 MILLIGRAM;
     Dates: start: 20070501

REACTIONS (2)
  - DRUG PRESCRIBING ERROR [None]
  - DIZZINESS [None]
